FAERS Safety Report 10095028 (Version 2)
Quarter: 2014Q2

REPORT INFORMATION
  Report Type: Spontaneous
  Country: KR (occurrence: KR)
  Receive Date: 20140422
  Receipt Date: 20140422
  Transmission Date: 20141212
  Serious: Yes (Other)
  Sender: FDA-Public Use
  Company Number: KR-009507513-1403KOR009879

PATIENT
  Sex: Female

DRUGS (1)
  1. MERCILON [Suspect]
     Indication: MENSTRUAL CYCLE MANAGEMENT
     Dosage: 1 TABLET, QD
     Route: 048
     Dates: start: 20140217

REACTIONS (5)
  - Anorectal operation [Unknown]
  - Vaginal odour [Not Recovered/Not Resolved]
  - Vaginal haemorrhage [Not Recovered/Not Resolved]
  - Incorrect drug administration duration [Unknown]
  - Off label use [Unknown]
